FAERS Safety Report 7341754-4 (Version None)
Quarter: 2011Q1

REPORT INFORMATION
  Report Type: 
  Country: None (occurrence: None)
  Receive Date: 20110309
  Receipt Date: 20110211
  Transmission Date: 20110831
  Serious: No
  Sender: FDA-Public Use
  Company Number: US-B.I. PHARMACEUTICALS,INC./RIDGEFIELD-2011-BP-05920BP

PATIENT
  Sex: Female

DRUGS (4)
  1. PRADAXA [Suspect]
     Indication: ATRIAL FIBRILLATION
     Dosage: 300 MG
     Route: 048
     Dates: start: 20101101
  2. VERAPAMIL [Concomitant]
     Indication: ATRIAL FIBRILLATION
     Dosage: 480 MG
     Route: 048
  3. PROTONIX [Concomitant]
     Indication: DYSPEPSIA
     Dosage: 40 MG
     Route: 048
  4. EXTRA STRENGTH TYLENOL [Concomitant]
     Indication: BACK PAIN
     Dosage: 3000 MG
     Route: 048

REACTIONS (1)
  - FLATULENCE [None]
